FAERS Safety Report 5097428-6 (Version None)
Quarter: 2006Q3

REPORT INFORMATION
  Report Type: 
  Country: None (occurrence: None)
  Receive Date: 20060901
  Receipt Date: 20060821
  Transmission Date: 20061208
  Serious: Yes (Hospitalization)
  Sender: FDA-Public Use
  Company Number: 2006SP000025

PATIENT
  Age: 41 Year
  Sex: Female
  Weight: 85.7298 kg

DRUGS (2)
  1. PEG-INTRON [Suspect]
     Indication: HEPATITIS C VIRUS
     Dosage: SC
     Route: 058
     Dates: start: 20060310
  2. RIBAVIRIN [Suspect]
     Indication: HEPATITIS C VIRUS
     Dosage: PO
     Route: 048
     Dates: start: 20060310

REACTIONS (4)
  - ALOPECIA [None]
  - APPENDICITIS [None]
  - ORAL INTAKE REDUCED [None]
  - WEIGHT DECREASED [None]
